FAERS Safety Report 8572916 (Version 3)
Quarter: 2013Q4

REPORT INFORMATION
  Report Type: Report from Study
  Country: US (occurrence: US)
  Receive Date: 20120522
  Receipt Date: 20131224
  Transmission Date: 20140711
  Serious: Yes (Other)
  Sender: FDA-Public Use
  Company Number: PHEH2012US010224

PATIENT
  Age: 6 Year
  Sex: Male

DRUGS (6)
  1. AFINITOR [Suspect]
     Indication: ASTROCYTOMA, LOW GRADE
     Dosage: 5 MG, DAILY
     Route: 048
     Dates: start: 20120405
  2. AFINITOR [Suspect]
     Dosage: 5 MG AND 2.5 MG ALTERNATE DAYS
     Route: 048
     Dates: start: 20131113
  3. AFINITOR [Suspect]
     Dosage: 5 MG, DAILY
     Route: 048
  4. LAMICTAL [Concomitant]
  5. RISPERDAL [Concomitant]
  6. SABRIL [Concomitant]

REACTIONS (5)
  - Immunodeficiency [Not Recovered/Not Resolved]
  - Convulsion [Not Recovered/Not Resolved]
  - Malaise [Not Recovered/Not Resolved]
  - Influenza like illness [Not Recovered/Not Resolved]
  - Vomiting [Not Recovered/Not Resolved]
